FAERS Safety Report 20836188 (Version 4)
Quarter: 2022Q4

REPORT INFORMATION
  Report Type: Report from Study
  Country: JP (occurrence: JP)
  Receive Date: 20220516
  Receipt Date: 20221007
  Transmission Date: 20230113
  Serious: Yes (Hospitalization, Other)
  Sender: FDA-Public Use
  Company Number: JP-BRISTOL-MYERS SQUIBB COMPANY-BMS-2021-097042

PATIENT
  Age: 48 Year
  Sex: Male
  Weight: 76.6 kg

DRUGS (8)
  1. YERVOY [Suspect]
     Active Substance: IPILIMUMAB
     Indication: Non-small cell lung cancer recurrent
     Dosage: 76 MG
     Route: 041
     Dates: start: 20210521, end: 20210927
  2. YERVOY [Suspect]
     Active Substance: IPILIMUMAB
     Dosage: 76 MG
     Route: 041
     Dates: end: 20220228
  3. YERVOY [Suspect]
     Active Substance: IPILIMUMAB
  4. OPDIVO [Suspect]
     Active Substance: NIVOLUMAB
     Indication: Non-small cell lung cancer recurrent
     Route: 042
     Dates: start: 20210521, end: 20220228
  5. CARBOPLATIN [Concomitant]
     Active Substance: CARBOPLATIN
     Indication: Non-small cell lung cancer recurrent
     Route: 065
     Dates: start: 20210521, end: 20210521
  6. CARBOPLATIN [Concomitant]
     Active Substance: CARBOPLATIN
     Dosage: ?????
     Route: 065
     Dates: start: 20210611, end: 20210611
  7. PEMETREXED DISODIUM [Concomitant]
     Active Substance: PEMETREXED DISODIUM
     Indication: Non-small cell lung cancer recurrent
     Route: 065
     Dates: start: 20210521, end: 20210521
  8. PEMETREXED DISODIUM [Concomitant]
     Active Substance: PEMETREXED DISODIUM
     Dosage: ?????
     Route: 065
     Dates: start: 20210611, end: 20210611

REACTIONS (9)
  - Hypopituitarism [Recovering/Resolving]
  - Secondary adrenocortical insufficiency [Recovering/Resolving]
  - Interstitial lung disease [Not Recovered/Not Resolved]
  - Liver disorder [Unknown]
  - Rash [Recovered/Resolved]
  - Pulmonary toxicity [Unknown]
  - Blood thyroid stimulating hormone decreased [Unknown]
  - Thyroxine free increased [Unknown]
  - Tri-iodothyronine free increased [Unknown]

NARRATIVE: CASE EVENT DATE: 20211029
